FAERS Safety Report 20855287 (Version 1)
Quarter: 2022Q2

REPORT INFORMATION
  Report Type: Spontaneous
  Country: DE (occurrence: DE)
  Receive Date: 20220520
  Receipt Date: 20220520
  Transmission Date: 20220721
  Serious: Yes (Hospitalization)
  Sender: FDA-Public Use
  Company Number: DE-NORGINE LIMITED-NOR202201722

PATIENT
  Age: 60 Year
  Sex: Male

DRUGS (2)
  1. SIMVASTATIN [Interacting]
     Active Substance: SIMVASTATIN
     Indication: Hepatic cirrhosis
     Dosage: 40 MG, QD
     Route: 048
  2. RIFAXIMIN [Interacting]
     Active Substance: RIFAXIMIN
     Indication: Hepatic cirrhosis
     Dosage: 400 MG, Q8HR
     Route: 065

REACTIONS (4)
  - Musculoskeletal toxicity [Unknown]
  - Rhabdomyolysis [Unknown]
  - Drug interaction [Unknown]
  - Hepatotoxicity [Unknown]
